FAERS Safety Report 5636447-5 (Version None)
Quarter: 2008Q1

REPORT INFORMATION
  Report Type: 
  Country: None (occurrence: None)
  Receive Date: 20080225
  Receipt Date: 20080215
  Transmission Date: 20080703
  Serious: Yes (Hospitalization, Other)
  Sender: FDA-Public Use
  Company Number: JP-WYE-H01052507

PATIENT
  Sex: Male
  Weight: 72.8 kg

DRUGS (12)
  1. AMIODARONE HCL [Suspect]
     Indication: HYPERTROPHIC CARDIOMYOPATHY
     Route: 048
     Dates: start: 20010501, end: 20010501
  2. AMIODARONE HCL [Suspect]
     Indication: VENTRICULAR TACHYCARDIA
     Route: 048
     Dates: start: 20010522, end: 20010608
  3. AMIODARONE HCL [Suspect]
     Route: 048
     Dates: start: 20010608
  4. ZYLORIC [Concomitant]
     Indication: HYPERURICAEMIA
     Route: 048
     Dates: start: 20010215
  5. ARTIST [Concomitant]
     Indication: CARDIAC FAILURE
     Route: 048
     Dates: start: 20010315, end: 20050704
  6. PLETAL [Concomitant]
     Indication: ATRIAL FLUTTER
     Route: 048
     Dates: start: 20030703, end: 20060710
  7. URSO 250 [Concomitant]
     Indication: HEPATIC FUNCTION ABNORMAL
     Route: 048
     Dates: start: 20010625
  8. LANSOPRAZOLE [Concomitant]
     Indication: GASTROINTESTINAL HAEMORRHAGE
     Route: 048
     Dates: start: 20020228, end: 20060814
  9. LASIX [Concomitant]
     Indication: CARDIAC FAILURE
     Route: 048
     Dates: start: 20040706
  10. ALDACTONE [Concomitant]
     Indication: CARDIAC FAILURE
     Route: 048
     Dates: start: 20040706
  11. BLOPRESS [Concomitant]
     Indication: HYPERTENSION
     Route: 048
     Dates: start: 20000612, end: 20050704
  12. PIMOBENDAN [Concomitant]
     Indication: CARDIAC FAILURE
     Route: 048
     Dates: start: 20010528

REACTIONS (4)
  - ANAEMIA [None]
  - CONDITION AGGRAVATED [None]
  - HYPOTHYROIDISM [None]
  - MELAENA [None]
